FAERS Safety Report 24387080 (Version 2)
Quarter: 2025Q3

REPORT INFORMATION
  Report Type: Spontaneous
  Country: CA (occurrence: CA)
  Receive Date: 20241002
  Receipt Date: 20250810
  Transmission Date: 20251021
  Serious: Yes (Hospitalization, Other)
  Sender: ALEXION PHARMACEUTICALS
  Company Number: CA-AstraZeneca-CH-00711739A

PATIENT
  Age: 47 Year
  Sex: Female

DRUGS (2)
  1. QUETIAPINE FUMARATE [Interacting]
     Active Substance: QUETIAPINE FUMARATE
     Indication: Product used for unknown indication
     Dosage: 100 MILLIGRAM, QD
  2. QUETIAPINE FUMARATE [Interacting]
     Active Substance: QUETIAPINE FUMARATE
     Indication: Major depression

REACTIONS (4)
  - Depressed level of consciousness [Recovering/Resolving]
  - Drug interaction [Recovering/Resolving]
  - Respiratory depression [Recovering/Resolving]
  - Toxicity to various agents [Recovering/Resolving]
